FAERS Safety Report 5916175-9 (Version None)
Quarter: 2008Q4

REPORT INFORMATION
  Report Type: 
  Country: None (occurrence: None)
  Receive Date: 20081009
  Receipt Date: 20080929
  Transmission Date: 20090506
  Serious: Yes (Hospitalization)
  Sender: FDA-Public Use
  Company Number: 2008BI025630

PATIENT
  Age: 47 Year
  Sex: Female

DRUGS (3)
  1. AVONEX [Suspect]
     Indication: MULTIPLE SCLEROSIS
     Dosage: 30 UG;QW;IM
     Route: 030
     Dates: start: 20030101, end: 20030801
  2. AVONEX [Suspect]
     Indication: MULTIPLE SCLEROSIS
     Dosage: 30 UG;QW;IM
     Route: 030
     Dates: start: 20030901
  3. . [Suspect]

REACTIONS (8)
  - ANAEMIA [None]
  - DEHYDRATION [None]
  - DISEASE RECURRENCE [None]
  - HYPOAESTHESIA [None]
  - HYPOTENSION [None]
  - LIP DISCOLOURATION [None]
  - MULTIPLE SCLEROSIS [None]
  - SKIN DISCOLOURATION [None]
